FAERS Safety Report 20601003 (Version 1)
Quarter: 2022Q1

REPORT INFORMATION
  Report Type: Spontaneous
  Country: US (occurrence: US)
  Receive Date: 20220316
  Receipt Date: 20220316
  Transmission Date: 20220424
  Serious: No
  Sender: FDA-Public Use
  Company Number: US-ASTELLAS-2021US042298

PATIENT
  Age: 72 Year
  Sex: Male

DRUGS (2)
  1. CRESEMBA [Suspect]
     Active Substance: ISAVUCONAZONIUM SULFATE
     Indication: Product used for unknown indication
     Dosage: 372 MG (186 MG 2 CAPSULES DAILY), ONCE DAILY
     Route: 065
     Dates: start: 202110, end: 202110
  2. CRESEMBA [Suspect]
     Active Substance: ISAVUCONAZONIUM SULFATE
     Route: 065
     Dates: start: 202110

REACTIONS (1)
  - Gastric disorder [Unknown]

NARRATIVE: CASE EVENT DATE: 20211001
